FAERS Safety Report 16045941 (Version 6)
Quarter: 2019Q3

REPORT INFORMATION
  Report Type: Spontaneous
  Country: SE (occurrence: SE)
  Receive Date: 20190307
  Receipt Date: 20190715
  Transmission Date: 20191004
  Serious: Yes (Hospitalization)
  Sender: FDA-Public Use
  Company Number: SE-BIOGEN-2019BI00705249

PATIENT
  Age: 50 Year
  Sex: Female

DRUGS (14)
  1. PULMICORT TURBUHALER [Concomitant]
     Active Substance: BUDESONIDE
     Indication: PRODUCT USED FOR UNKNOWN INDICATION
     Route: 065
  2. TYSABRI [Suspect]
     Active Substance: NATALIZUMAB
     Indication: MULTIPLE SCLEROSIS
     Route: 065
     Dates: start: 2006
  3. TAVEGYL [Concomitant]
     Active Substance: CLEMASTINE FUMARATE
     Indication: DRUG INTOLERANCE
     Route: 065
  4. EMGESAN [Concomitant]
     Active Substance: MAGNESIUM HYDROXIDE
     Indication: PRODUCT USED FOR UNKNOWN INDICATION
     Dosage: 1 X 2
     Route: 065
  5. SYMBICORT [Concomitant]
     Active Substance: BUDESONIDE\FORMOTEROL FUMARATE DIHYDRATE
     Indication: PRODUCT USED FOR UNKNOWN INDICATION
     Route: 065
  6. TYSABRI [Suspect]
     Active Substance: NATALIZUMAB
     Route: 042
     Dates: start: 20091211
  7. CORTISON [Concomitant]
     Active Substance: CORTISONE ACETATE
     Indication: DRUG INTOLERANCE
     Route: 065
  8. DESLORATADIN [Concomitant]
     Active Substance: DESLORATADINE
     Indication: PRODUCT USED FOR UNKNOWN INDICATION
     Dosage: 1 X 1-3
     Route: 065
  9. TYSABRI [Suspect]
     Active Substance: NATALIZUMAB
     Route: 065
     Dates: end: 201901
  10. TYSABRI [Suspect]
     Active Substance: NATALIZUMAB
     Dosage: TAKES TYSABRI AT HALF SPEED
     Route: 065
  11. OMEPRAZOLE. [Concomitant]
     Active Substance: OMEPRAZOLE
     Indication: PRODUCT USED FOR UNKNOWN INDICATION
     Dosage: X1
     Route: 065
  12. MODAFINIL. [Concomitant]
     Active Substance: MODAFINIL
     Indication: PRODUCT USED FOR UNKNOWN INDICATION
     Dosage: X1
     Route: 065
  13. TYSABRI [Suspect]
     Active Substance: NATALIZUMAB
     Route: 065
  14. FOLSYRA [Concomitant]
     Indication: PRODUCT USED FOR UNKNOWN INDICATION
     Dosage: X1
     Route: 065

REACTIONS (11)
  - Pancreatitis viral [Not Recovered/Not Resolved]
  - Uhthoff^s phenomenon [Recovered/Resolved]
  - Prescribed underdose [Unknown]
  - Drug intolerance [Unknown]
  - Musculoskeletal procedural complication [Not Recovered/Not Resolved]
  - Herpes zoster [Recovered/Resolved]
  - Chondrocalcinosis [Not Recovered/Not Resolved]
  - Incorrect drug administration rate [Unknown]
  - Procedural pain [Not Recovered/Not Resolved]
  - Herpes zoster disseminated [Not Recovered/Not Resolved]
  - Underweight [Unknown]

NARRATIVE: CASE EVENT DATE: 2006
